FAERS Safety Report 21875882 (Version 3)
Quarter: 2023Q1

REPORT INFORMATION
  Report Type: Spontaneous
  Country: US (occurrence: US)
  Receive Date: 20230118
  Receipt Date: 20230306
  Transmission Date: 20230417
  Serious: No
  Sender: FDA-Public Use
  Company Number: US-ELI_LILLY_AND_COMPANY-US202301005615

PATIENT
  Sex: Female

DRUGS (3)
  1. EMGALITY [Suspect]
     Active Substance: GALCANEZUMAB-GNLM
     Indication: Migraine
     Dosage: 120 MG, UNKNOWN
     Route: 058
     Dates: start: 2017
  2. NAPROXEN [Concomitant]
     Active Substance: NAPROXEN
     Indication: Migraine
  3. RIZATRIPTAN [Concomitant]
     Active Substance: RIZATRIPTAN
     Indication: Migraine

REACTIONS (5)
  - Yawning [Unknown]
  - Lacrimation increased [Unknown]
  - Reading disorder [Unknown]
  - Incorrect dose administered [Unknown]
  - Injection site pain [Unknown]
